FAERS Safety Report 17544101 (Version 4)
Quarter: 2020Q2

REPORT INFORMATION
  Report Type: Report from Study
  Country: US (occurrence: US)
  Receive Date: 20200316
  Receipt Date: 20200512
  Transmission Date: 20200713
  Serious: Yes (Hospitalization, Other)
  Sender: FDA-Public Use
  Company Number: US-BRISTOL-MYERS SQUIBB COMPANY-BMS-2020-021589

PATIENT
  Age: 86 Year
  Sex: Male
  Weight: 63.96 kg

DRUGS (1)
  1. APIXABAN [Suspect]
     Active Substance: APIXABAN
     Indication: CEREBROVASCULAR ACCIDENT PROPHYLAXIS
     Dosage: 2.5 MILLIGRAM, BID
     Route: 048
     Dates: start: 2018, end: 2020

REACTIONS (7)
  - Tooth loss [Unknown]
  - Weight increased [Unknown]
  - Dementia Alzheimer^s type [Unknown]
  - Colon cancer [Unknown]
  - Cardiovascular disorder [Unknown]
  - Scar [Unknown]
  - Weight decreased [Recovering/Resolving]

NARRATIVE: CASE EVENT DATE: 2020
